FAERS Safety Report 8184275-1 (Version None)
Quarter: 2012Q1

REPORT INFORMATION
  Report Type: 
  Country: None (occurrence: None)
  Receive Date: 20120305
  Receipt Date: 20120301
  Transmission Date: 20120608
  Serious: Yes (Hospitalization, Other)
  Sender: FDA-Public Use
  Company Number: BR-ABBOTT-11P-020-0852408-00

PATIENT
  Sex: Female
  Weight: 78 kg

DRUGS (10)
  1. CARBAMAZEPINE [Concomitant]
     Indication: DEPRESSION
     Route: 048
  2. METFORMIN HCL [Concomitant]
     Indication: DIABETES MELLITUS
     Dosage: 1700MG DAILY, 850MG, 2 IN 1 DAY
     Route: 048
  3. LILLS [Concomitant]
     Indication: BLOOD TRIGLYCERIDES
     Route: 048
  4. PREDNISONE TAB [Concomitant]
     Indication: RHEUMATOID ARTHRITIS
     Route: 048
  5. CALCIUM [Concomitant]
     Indication: BONE DISORDER
     Route: 048
  6. METHOTREXATE [Concomitant]
     Indication: RHEUMATOID ARTHRITIS
     Route: 030
  7. CHOLECALCIFEROL [Concomitant]
     Indication: PRODUCT USED FOR UNKNOWN INDICATION
     Route: 048
  8. PERICIAZINE [Concomitant]
     Indication: SLEEP DISORDER THERAPY
     Dosage: NEULEPTIL 4%
     Route: 048
  9. HUMIRA [Suspect]
     Indication: RHEUMATOID ARTHRITIS
     Route: 058
     Dates: start: 20100501
  10. CITALOPRAM HYDROBROMIDE [Concomitant]
     Indication: DEPRESSION
     Route: 048

REACTIONS (10)
  - RASH MACULAR [None]
  - ANAPHYLACTIC SHOCK [None]
  - PRURITUS [None]
  - BLOOD CHOLESTEROL INCREASED [None]
  - TONGUE DISORDER [None]
  - ABDOMINAL DISTENSION [None]
  - OEDEMA PERIPHERAL [None]
  - BLOOD TRIGLYCERIDES INCREASED [None]
  - ERYTHEMA [None]
  - DYSPHAGIA [None]
